FAERS Safety Report 4929132-6 (Version None)
Quarter: 2006Q1

REPORT INFORMATION
  Report Type: 
  Country: None (occurrence: None)
  Receive Date: 20060301
  Receipt Date: 20051117
  Transmission Date: 20060701
  Serious: Yes (Death, Hospitalization)
  Sender: FDA-Public Use
  Company Number: US-MERCK-0511USA03155

PATIENT
  Age: 52 Year
  Sex: Male
  Weight: 91 kg

DRUGS (13)
  1. AMARYL [Concomitant]
     Route: 065
  2. ZESTRIL [Concomitant]
     Indication: HYPERTENSION
     Route: 065
     Dates: start: 19991001
  3. RANITIDINE [Concomitant]
     Route: 065
  4. ASPIRIN [Concomitant]
     Indication: PROPHYLAXIS
     Route: 065
     Dates: start: 19991201, end: 20001001
  5. VIOXX [Suspect]
     Indication: SHOULDER PAIN
     Route: 048
     Dates: start: 19991210, end: 20001201
  6. TRIAMTERENE [Concomitant]
     Indication: HYPERTENSION
     Route: 065
     Dates: start: 19990301
  7. METOPROLOL [Concomitant]
     Indication: HYPERTENSION
     Route: 065
     Dates: start: 19991201
  8. IBUPROFEN [Concomitant]
     Route: 065
     Dates: start: 19990601, end: 20001101
  9. ZOLOFT [Concomitant]
     Indication: ANXIETY DISORDER
     Route: 065
     Dates: start: 19991201
  10. WELLBUTRIN [Concomitant]
     Indication: INSOMNIA
     Route: 065
     Dates: start: 19991201
  11. CELEBREX [Concomitant]
     Route: 065
     Dates: start: 20000101
  12. NAPROXEN [Concomitant]
     Route: 065
     Dates: start: 20000201
  13. NEXIUM [Concomitant]
     Route: 065

REACTIONS (14)
  - ANXIETY [None]
  - CHEST DISCOMFORT [None]
  - CORONARY ARTERY DISEASE [None]
  - DEATH [None]
  - DEPRESSION [None]
  - DIABETIC NEUROPATHY [None]
  - DRUG INEFFECTIVE [None]
  - GALLBLADDER DISORDER [None]
  - GASTROOESOPHAGEAL REFLUX DISEASE [None]
  - HIATUS HERNIA [None]
  - MELAENA [None]
  - MYOCARDIAL INFARCTION [None]
  - PERIPHERAL VASCULAR DISORDER [None]
  - WEIGHT DECREASED [None]
